FAERS Safety Report 9191071 (Version 1)
Quarter: 2013Q1

REPORT INFORMATION
  Report Type: Report from Study
  Country: NZ (occurrence: NZ)
  Receive Date: 20130326
  Receipt Date: 20130326
  Transmission Date: 20140127
  Serious: Yes (Other)
  Sender: FDA-Public Use
  Company Number: NZ-ROCHE-1204586

PATIENT
  Sex: 0

DRUGS (2)
  1. CAPECITABINE [Suspect]
     Indication: BREAST CANCER METASTATIC
     Dosage: DAYS 1-28
     Route: 065
  2. CYCLOPHOSPHAMIDE [Suspect]
     Indication: BREAST CANCER METASTATIC
     Route: 048

REACTIONS (11)
  - Neutropenia [Unknown]
  - Febrile neutropenia [Unknown]
  - Palmar-plantar erythrodysaesthesia syndrome [Unknown]
  - Fatigue [Unknown]
  - Diarrhoea [Unknown]
  - Thrombocytopenia [Unknown]
  - Nausea [Unknown]
  - Vomiting [Unknown]
  - Mucosal inflammation [Unknown]
  - Stomatitis [Unknown]
  - Urinary tract disorder [Unknown]
